FAERS Safety Report 17655463 (Version 5)
Quarter: 2021Q3

REPORT INFORMATION
  Report Type: Spontaneous
  Country: US (occurrence: US)
  Receive Date: 20200410
  Receipt Date: 20210729
  Transmission Date: 20211014
  Serious: No
  Sender: FDA-Public Use
  Company Number: US-PFIZER INC-2020145536

PATIENT
  Age: 77 Year
  Sex: Female

DRUGS (1)
  1. RETACRIT [Suspect]
     Active Substance: EPOETIN ALFA-EPBX
     Indication: NEPHROGENIC ANAEMIA
     Dosage: 10000 IU EVERY 2 WEEKS (EVERY 14 DAYS)

REACTIONS (3)
  - Somnolence [Unknown]
  - Off label use [Unknown]
  - Product dose omission issue [Unknown]
